FAERS Safety Report 6262088-5 (Version None)
Quarter: 2009Q3

REPORT INFORMATION
  Report Type: 
  Country: None (occurrence: None)
  Receive Date: 20090707
  Receipt Date: 20090707
  Transmission Date: 20100115
  Serious: No
  Sender: FDA-Public Use
  Company Number: None

PATIENT
  Age: 50 Year
  Sex: Female
  Weight: 84.8226 kg

DRUGS (1)
  1. BONTRIL [Suspect]
     Indication: OVERWEIGHT
     Dosage: PO
     Route: 048

REACTIONS (8)
  - BLINDNESS TRANSIENT [None]
  - DIZZINESS [None]
  - DYSPNOEA [None]
  - DYSPNOEA EXERTIONAL [None]
  - HYPERTENSION [None]
  - OEDEMA PERIPHERAL [None]
  - ORBITAL OEDEMA [None]
  - PALPITATIONS [None]
